FAERS Safety Report 9745849 (Version 2)
Quarter: 2014Q1

REPORT INFORMATION
  Report Type: Spontaneous
  Country: IN (occurrence: None)
  Receive Date: 20131205
  Receipt Date: 20140224
  Transmission Date: 20141002
  Serious: Yes (Other)
  Sender: FDA-Public Use
  Company Number: CO-OR-IN-2013-219

PATIENT
  Sex: 0

DRUGS (6)
  1. PREDNISOLONE (PREDNISOLONE) [Suspect]
     Indication: LEUKOCYTOSIS
  2. PREDNISOLONE (PREDNISOLONE) [Suspect]
     Indication: ACUTE LYMPHOCYTIC LEUKAEMIA
  3. HYDRATION [Concomitant]
  4. ALLOPURINOL [Concomitant]
  5. PHOSPHATE BINDERS [Concomitant]
  6. RASBURICASE [Concomitant]

REACTIONS (1)
  - Tumour lysis syndrome [None]
